FAERS Safety Report 9437295 (Version 1)
Quarter: 2013Q3

REPORT INFORMATION
  Report Type: Report from Study
  Country: US (occurrence: US)
  Receive Date: 20130802
  Receipt Date: 20130802
  Transmission Date: 20140515
  Serious: Yes (Hospitalization)
  Sender: FDA-Public Use
  Company Number: PHHO2013US009768

PATIENT
  Age: 65 Year
  Sex: Male

DRUGS (12)
  1. NEORAL [Suspect]
     Indication: RENAL TRANSPLANT
     Dosage: 200 MG, QD
     Route: 048
     Dates: start: 20060712
  2. MYCOPHENOLATE MOFETIL [Suspect]
     Dosage: 1500 MG, QD
  3. PREDNISONE [Suspect]
     Dosage: 5 MG, QD
  4. ASPIRIN [Concomitant]
  5. PAROXETINE [Concomitant]
  6. ATENOLOL [Concomitant]
  7. PRAVASTATIN SODIUM [Concomitant]
  8. OMEPRAZOLE [Concomitant]
  9. LASIX [Concomitant]
  10. NORVASC [Concomitant]
  11. CALCIFEROL [Concomitant]
  12. LEVEMIR [Concomitant]

REACTIONS (6)
  - Chronic obstructive pulmonary disease [Recovered/Resolved]
  - Pneumonia respiratory syncytial viral [Recovered/Resolved]
  - Oropharyngeal pain [Recovered/Resolved]
  - Rhinorrhoea [Recovered/Resolved]
  - Cough [Recovered/Resolved]
  - Dyspnoea [Recovered/Resolved]
